FAERS Safety Report 25332051 (Version 1)
Quarter: 2025Q2

REPORT INFORMATION
  Report Type: Spontaneous
  Country: ES (occurrence: ES)
  Receive Date: 20250519
  Receipt Date: 20250519
  Transmission Date: 20250717
  Serious: Yes (Other)
  Sender: ELI LILLY AND COMPANY
  Company Number: ES-ELI_LILLY_AND_COMPANY-ES202502020646

PATIENT
  Age: 62 Year
  Sex: Female
  Weight: 68 kg

DRUGS (4)
  1. SELPERCATINIB [Suspect]
     Active Substance: SELPERCATINIB
     Indication: Papillary thyroid cancer
     Dosage: 160 MG, BID
     Route: 048
     Dates: start: 20211201, end: 20220110
  2. SELPERCATINIB [Suspect]
     Active Substance: SELPERCATINIB
     Route: 048
     Dates: start: 20220210
  3. SELPERCATINIB [Suspect]
     Active Substance: SELPERCATINIB
     Route: 048
  4. SELPERCATINIB [Suspect]
     Active Substance: SELPERCATINIB
     Route: 048

REACTIONS (1)
  - Hepatotoxicity [Recovered/Resolved]

NARRATIVE: CASE EVENT DATE: 20220110
